FAERS Safety Report 15987964 (Version 2)
Quarter: 2019Q1

REPORT INFORMATION
  Report Type: Report from Study
  Country: None (occurrence: CA)
  Receive Date: 20190220
  Receipt Date: 20190225
  Transmission Date: 20190418
  Serious: Yes (Hospitalization, Other)
  Sender: FDA-Public Use
  Company Number: CA-ABBVIE-19K-028-2672004-00

PATIENT
  Age: 51 Year
  Sex: Male

DRUGS (1)
  1. HUMIRA [Suspect]
     Active Substance: ADALIMUMAB
     Indication: ANKYLOSING SPONDYLITIS
     Route: 058
     Dates: start: 20150808, end: 20190203

REACTIONS (9)
  - Pelvic fracture [Not Recovered/Not Resolved]
  - Pain [Not Recovered/Not Resolved]
  - Road traffic accident [Recovered/Resolved]
  - Internal haemorrhage [Unknown]
  - Rib fracture [Not Recovered/Not Resolved]
  - Fall [Recovered/Resolved]
  - Testicular swelling [Not Recovered/Not Resolved]
  - Fracture [Not Recovered/Not Resolved]
  - Blood urine present [Unknown]

NARRATIVE: CASE EVENT DATE: 20190202
